FAERS Safety Report 20915298 (Version 1)
Quarter: 2022Q2

REPORT INFORMATION
  Report Type: Spontaneous
  Country: US (occurrence: US)
  Receive Date: 20220604
  Receipt Date: 20220604
  Transmission Date: 20220721
  Serious: No
  Sender: FDA-Public Use
  Company Number: US-SA-SAC20220527001021

PATIENT

DRUGS (4)
  1. DUPIXENT [Suspect]
     Active Substance: DUPILUMAB
     Indication: Dermatitis atopic
     Dosage: 300 MG, QOW
     Route: 058
     Dates: start: 20211214
  2. AZELASTINE [Concomitant]
     Active Substance: AZELASTINE
  3. CETIRIZINE [Concomitant]
     Active Substance: CETIRIZINE HYDROCHLORIDE
  4. KETOTIFEN [Concomitant]
     Active Substance: KETOTIFEN

REACTIONS (5)
  - Discomfort [Unknown]
  - Weight increased [Unknown]
  - Sleep disorder [Unknown]
  - Injection site reaction [Unknown]
  - Rash [Unknown]
